FAERS Safety Report 15762832 (Version 2)
Quarter: 2018Q4

REPORT INFORMATION
  Report Type: Spontaneous
  Country: US (occurrence: US)
  Receive Date: 20181226
  Receipt Date: 20181231
  Transmission Date: 20190205
  Serious: Yes (Other)
  Sender: FDA-Public Use
  Company Number: US-PFIZER INC-2018524628

PATIENT
  Age: 64 Year
  Sex: Female

DRUGS (2)
  1. FLUDARABINE PHOSPHATE. [Suspect]
     Active Substance: FLUDARABINE PHOSPHATE
     Indication: CHRONIC LYMPHOCYTIC LEUKAEMIA STAGE 4
     Dosage: 20 MG/M2, DAILY (CYCLIC)
     Route: 042
     Dates: start: 1991, end: 1991
  2. FLUDARABINE PHOSPHATE. [Suspect]
     Active Substance: FLUDARABINE PHOSPHATE
     Dosage: 25 MG/M2, DAILY (CYCLIC)
     Route: 042
     Dates: start: 1991, end: 1991

REACTIONS (1)
  - Toxic leukoencephalopathy [Recovered/Resolved]
